FAERS Safety Report 18506086 (Version 2)
Quarter: 2020Q4

REPORT INFORMATION
  Report Type: Report from Study
  Country: US (occurrence: US)
  Receive Date: 20201116
  Receipt Date: 20201204
  Transmission Date: 20210114
  Serious: Yes (Death)
  Sender: FDA-Public Use
  Company Number: US-UCBSA-2020044987

PATIENT
  Sex: Male
  Weight: 81 kg

DRUGS (2)
  1. ROTIGOTINE [Suspect]
     Active Substance: ROTIGOTINE
     Dosage: 4 MILLIGRAM, ONCE DAILY (QD)
     Dates: start: 20200623, end: 20201028
  2. ROTIGOTINE [Suspect]
     Active Substance: ROTIGOTINE
     Indication: PARKINSON^S DISEASE
     Dosage: 3 MILLIGRAM, ONCE DAILY (QD)
     Dates: start: 202002, end: 2020

REACTIONS (1)
  - Coronary artery disease [Fatal]
